FAERS Safety Report 12808725 (Version 1)
Quarter: 2016Q4

REPORT INFORMATION
  Report Type: Spontaneous
  Country: US (occurrence: US)
  Receive Date: 20161004
  Receipt Date: 20161004
  Transmission Date: 20170207
  Serious: No
  Sender: FDA-Public Use
  Company Number: US-ELI_LILLY_AND_COMPANY-US201609011697

PATIENT
  Age: 68 Year
  Sex: Male

DRUGS (4)
  1. HUMULIN R U-500 [Suspect]
     Active Substance: INSULIN HUMAN
     Dosage: 65 U, AT DINNERTIME
     Route: 065
     Dates: start: 201608
  2. HUMULIN N [Suspect]
     Active Substance: INSULIN HUMAN
     Indication: PRODUCT USED FOR UNKNOWN INDICATION
     Dosage: UNK, UNKNOWN
     Route: 065
  3. METFORMIN [Concomitant]
     Active Substance: METFORMIN HYDROCHLORIDE
  4. HUMULIN R U-500 [Suspect]
     Active Substance: INSULIN HUMAN
     Indication: TYPE 2 DIABETES MELLITUS
     Dosage: 50 U, AT BREAKFAST AND LUNCH
     Route: 065
     Dates: start: 201608

REACTIONS (1)
  - Drug dispensing error [Unknown]

NARRATIVE: CASE EVENT DATE: 20160927
